FAERS Safety Report 24163461 (Version 1)
Quarter: 2024Q3

REPORT INFORMATION
  Report Type: Spontaneous
  Country: FR (occurrence: FR)
  Receive Date: 20240801
  Receipt Date: 20240801
  Transmission Date: 20241016
  Serious: Yes (Hospitalization)
  Sender: NORDIC PHARMA
  Company Number: None

PATIENT
  Age: 30 Year
  Sex: Female
  Weight: 50 kg

DRUGS (8)
  1. METHOTREXATE [Suspect]
     Active Substance: METHOTREXATE
     Indication: Psoriasis
     Route: 065
     Dates: start: 20190124, end: 20190808
  2. METHOTREXATE [Suspect]
     Active Substance: METHOTREXATE
     Indication: Psoriasis
     Route: 065
     Dates: start: 201808, end: 20190808
  3. DESOGESTREL [Concomitant]
     Active Substance: DESOGESTREL
     Indication: Hormonal contraception
     Route: 048
  4. KYNTHEUM 210 mg, solution injectable en seringue pr?remplie [Concomitant]
     Indication: Psoriasis
     Route: 058
     Dates: start: 20230821, end: 20231227
  5. TIMOFEROL 50 mg, comprim? enrob? [Concomitant]
     Indication: Mineral supplementation
     Route: 048
  6. HYRIMOZ 40 mg, solution injectable en stylo pr?rempli [Concomitant]
     Indication: Psoriasis
     Route: 058
     Dates: start: 20190808, end: 202109
  7. TALTZ 80 mg, solution injectable en stylo pr?-rempli [Concomitant]
     Indication: Psoriasis
     Route: 058
     Dates: start: 202109, end: 20220818
  8. SKYRIZI 150 mg, solution injectable en stylo pr?rempli [Concomitant]
     Indication: Psoriasis
     Route: 058
     Dates: start: 20220818, end: 20230821

REACTIONS (1)
  - B-cell type acute leukaemia [Not Recovered/Not Resolved]

NARRATIVE: CASE EVENT DATE: 20231223
